FAERS Safety Report 13175967 (Version 1)
Quarter: 2017Q1

REPORT INFORMATION
  Report Type: Spontaneous
  Country: US (occurrence: US)
  Receive Date: 20170201
  Receipt Date: 20170201
  Transmission Date: 20170428
  Serious: Yes (Other)
  Sender: FDA-Public Use
  Company Number: US-SAOL THERAPEUTICS-2017SAO00156

PATIENT
  Age: 74 Year
  Sex: Female

DRUGS (2)
  1. LIORESAL [Suspect]
     Active Substance: BACLOFEN
     Indication: MUSCLE SPASTICITY
     Dosage: 96 ?G, \DAY
     Route: 037
     Dates: end: 20170120
  2. LIORESAL [Suspect]
     Active Substance: BACLOFEN
     Indication: MUSCLE SPASTICITY
     Dosage: 75 ?G, \DAY
     Route: 037
     Dates: start: 20170120

REACTIONS (4)
  - Somnolence [Not Recovered/Not Resolved]
  - Oxygen saturation decreased [Recovering/Resolving]
  - Incorrect dose administered [Recovered/Resolved]
  - Hypotension [Recovering/Resolving]

NARRATIVE: CASE EVENT DATE: 20170120
